FAERS Safety Report 11755865 (Version 2)
Quarter: 2015Q4

REPORT INFORMATION
  Report Type: Spontaneous
  Country: BR (occurrence: BR)
  Receive Date: 20151119
  Receipt Date: 20151125
  Transmission Date: 20160304
  Serious: Yes (Other)
  Sender: FDA-Public Use
  Company Number: BR-SA-2015SA179160

PATIENT
  Age: 17 Year
  Sex: Female

DRUGS (2)
  1. NAPHAZOLINE HYDROCHLORIDE. [Suspect]
     Active Substance: NAPHAZOLINE HYDROCHLORIDE
     Route: 065
  2. ALLEGRA-D [Suspect]
     Active Substance: FEXOFENADINE\PSEUDOEPHEDRINE
     Route: 065

REACTIONS (3)
  - Seizure [Unknown]
  - Amnesia [Unknown]
  - Hypokinesia [Unknown]
